FAERS Safety Report 9826375 (Version 1)
Quarter: 2014Q1

REPORT INFORMATION
  Report Type: Spontaneous
  Country: US (occurrence: US)
  Receive Date: 20140117
  Receipt Date: 20140117
  Transmission Date: 20141002
  Serious: No
  Sender: FDA-Public Use
  Company Number: US-BIOGENIDEC-2014BI003290

PATIENT
  Age: 43 Year
  Sex: Female

DRUGS (7)
  1. TECFIDERA [Suspect]
     Indication: MULTIPLE SCLEROSIS
     Route: 048
     Dates: start: 201312
  2. AVONEX [Concomitant]
  3. EXCEDRIN MIGRAINE [Concomitant]
  4. IBUPROFEN [Concomitant]
  5. D2000 ULTRA STRENGTH [Concomitant]
  6. VITAMIN D [Concomitant]
  7. TRAMADOL  HCL ER [Concomitant]

REACTIONS (1)
  - Headache [Unknown]
